FAERS Safety Report 14166284 (Version 1)
Quarter: 2017Q4

REPORT INFORMATION
  Report Type: Spontaneous
  Country: US (occurrence: US)
  Receive Date: 20171107
  Receipt Date: 20171107
  Transmission Date: 20180321
  Serious: Yes (Other)
  Sender: FDA-Public Use
  Company Number: US-SA-2017SA213183

PATIENT
  Age: 56 Year
  Sex: Female
  Weight: 81.6 kg

DRUGS (2)
  1. ICY HOT MEDICATED NO MESS APPLICATOR [Suspect]
     Active Substance: MENTHOL
     Indication: BACK PAIN
     Route: 061
     Dates: start: 20160122, end: 201608
  2. ICY HOT MEDICATED NO MESS APPLICATOR [Suspect]
     Active Substance: MENTHOL
     Indication: BACK PAIN
     Route: 061
     Dates: start: 201701

REACTIONS (3)
  - Scar [Not Recovered/Not Resolved]
  - Third degree chemical burn of skin [Not Recovered/Not Resolved]
  - Pain [Unknown]

NARRATIVE: CASE EVENT DATE: 201608
